FAERS Safety Report 25480287 (Version 2)
Quarter: 2025Q4

REPORT INFORMATION
  Report Type: Spontaneous
  Country: US (occurrence: US)
  Receive Date: 20250625
  Receipt Date: 20251014
  Transmission Date: 20260117
  Serious: Yes (Death, Hospitalization, Other)
  Sender: SANOFI AVENTIS
  Company Number: US-SA-2025SA179331

PATIENT
  Age: 67 Year
  Sex: Female

DRUGS (1)
  1. DUPIXENT [Suspect]
     Active Substance: DUPILUMAB
     Indication: Chronic obstructive pulmonary disease
     Dosage: 300 MG, QOW
     Route: 058
     Dates: start: 20250516

REACTIONS (11)
  - Death [Fatal]
  - Pneumonia [Unknown]
  - Productive cough [Unknown]
  - Chest discomfort [Unknown]
  - Dyspnoea [Unknown]
  - Respiratory symptom [Unknown]
  - Oxygen consumption increased [Unknown]
  - Chest pain [Unknown]
  - Loss of personal independence in daily activities [Unknown]
  - Hypersensitivity [Unknown]
  - Incorrect dose administered [Unknown]

NARRATIVE: CASE EVENT DATE: 20250101
